FAERS Safety Report 8132498-X (Version None)
Quarter: 2012Q1

REPORT INFORMATION
  Report Type: 
  Country: None (occurrence: None)
  Receive Date: 20120213
  Receipt Date: 20120204
  Transmission Date: 20120608
  Serious: Yes (Hospitalization)
  Sender: FDA-Public Use
  Company Number: US-BRISTOL-MYERS SQUIBB COMPANY-16385221

PATIENT
  Age: 64 Year
  Sex: Female
  Weight: 130 kg

DRUGS (3)
  1. CARBOPLATIN [Suspect]
     Indication: ENDOMETRIAL CANCER
     Dosage: LAST DOSE:15DEC2011
     Route: 042
     Dates: start: 20111103
  2. RHUMAB-VEGF [Suspect]
     Indication: ENDOMETRIAL CANCER
     Dosage: LAST DOSE:15DEC2011
     Route: 042
     Dates: start: 20111103
  3. IXEMPRA KIT [Suspect]
     Indication: ENDOMETRIAL CANCER
     Dosage: LAST DOSE:15DEC2011
     Route: 042
     Dates: start: 20111103

REACTIONS (1)
  - FEMALE GENITAL TRACT FISTULA [None]
